FAERS Safety Report 6512163-2 (Version None)
Quarter: 2009Q4

REPORT INFORMATION
  Report Type: 
  Country: None (occurrence: None)
  Receive Date: 20091222
  Receipt Date: 20090614
  Transmission Date: 20100525
  Serious: No
  Sender: FDA-Public Use
  Company Number: US-ASTRAZENECA-2009UW15123

PATIENT
  Age: 52 Year
  Sex: Female
  Weight: 60.8 kg

DRUGS (5)
  1. CRESTOR [Suspect]
     Indication: BLOOD CHOLESTEROL INCREASED
     Route: 048
     Dates: start: 20090613
  2. BABY ASPIRIN [Concomitant]
  3. COENZYME Q10 [Concomitant]
  4. LEVOXYL [Concomitant]
  5. VITAMIN B COMPLEX CAP [Concomitant]

REACTIONS (4)
  - ABDOMINAL DISTENSION [None]
  - ABDOMINAL SYMPTOM [None]
  - DIARRHOEA [None]
  - FLATULENCE [None]
